FAERS Safety Report 6217213-9 (Version None)
Quarter: 2009Q2

REPORT INFORMATION
  Report Type: 
  Country: None (occurrence: None)
  Receive Date: 20090608
  Receipt Date: 20090527
  Transmission Date: 20091009
  Serious: Yes (Hospitalization)
  Sender: FDA-Public Use
  Company Number: AU-PFIZER INC-2009219087

PATIENT

DRUGS (4)
  1. LIPITOR [Suspect]
     Dosage: 20 MG, UNK
  2. ATACAND [Concomitant]
  3. NEXIUM [Concomitant]
     Indication: REFLUX GASTRITIS
  4. CLOPIDOGREL [Concomitant]

REACTIONS (4)
  - BURNING SENSATION [None]
  - GAIT DISTURBANCE [None]
  - MYALGIA [None]
  - PAIN IN EXTREMITY [None]
